FAERS Safety Report 7371957-4 (Version None)
Quarter: 2011Q1

REPORT INFORMATION
  Report Type: 
  Country: None (occurrence: None)
  Receive Date: 20110225
  Receipt Date: 20101105
  Transmission Date: 20110831
  Serious: No
  Sender: FDA-Public Use
  Company Number: 319742

PATIENT
  Age: 35 Year
  Sex: Female

DRUGS (6)
  1. ICAR-C PLUS (ASCORBIC ACID, CYANOCOBALAMIN, FOLIC ACID, IRON PENTACARB [Concomitant]
  2. LEVOXYL [Concomitant]
  3. FORTAMET [Concomitant]
  4. SIMVASTATIN [Concomitant]
  5. VICTOZA [Suspect]
     Indication: TYPE 2 DIABETES MELLITUS
     Dosage: 1.8 MG, QD, SUBCUTANEOUS
     Route: 058
     Dates: start: 20101105
  6. VITAMIN D [Concomitant]

REACTIONS (2)
  - DIZZINESS [None]
  - SLUGGISHNESS [None]
